FAERS Safety Report 20402964 (Version 2)
Quarter: 2022Q1

REPORT INFORMATION
  Report Type: Spontaneous
  Country: US (occurrence: US)
  Receive Date: 20220131
  Receipt Date: 20220201
  Transmission Date: 20220423
  Serious: No
  Sender: FDA-Public Use
  Company Number: US-ABBVIE-21K-163-4142946-00

PATIENT
  Sex: Female
  Weight: 90.800 kg

DRUGS (11)
  1. HUMIRA [Suspect]
     Active Substance: ADALIMUMAB
     Indication: Rheumatoid arthritis
     Route: 058
     Dates: start: 2019
  2. HUMIRA [Suspect]
     Active Substance: ADALIMUMAB
     Route: 058
     Dates: start: 20211014
  3. NITROGLYCERIN [Concomitant]
     Active Substance: NITROGLYCERIN
     Indication: Oesophageal spasm
  4. PFIZER-BIONTECH COVID-19 VACCINE [Concomitant]
     Active Substance: TOZINAMERAN
     Indication: COVID-19 immunisation
     Dosage: PFIZER
     Route: 030
     Dates: start: 20210910, end: 20210910
  5. PFIZER-BIONTECH COVID-19 VACCINE [Concomitant]
     Active Substance: TOZINAMERAN
     Dosage: PFIZER
     Route: 030
     Dates: start: 20211001, end: 20211001
  6. LEFLUNOMIDE [Concomitant]
     Active Substance: LEFLUNOMIDE
     Indication: Rheumatoid arthritis
  7. PREDNISONE [Concomitant]
     Active Substance: PREDNISONE
     Indication: Rheumatoid arthritis
  8. DULOXETINE [Concomitant]
     Active Substance: DULOXETINE
     Indication: Rheumatoid arthritis
  9. FISH OIL [Concomitant]
     Active Substance: FISH OIL
     Indication: Supplementation therapy
  10. VITAMIN D [Concomitant]
     Active Substance: VITAMIN D NOS
     Indication: Supplementation therapy
  11. OMEPRAZOLE [Concomitant]
     Active Substance: OMEPRAZOLE
     Indication: Gastrooesophageal reflux disease

REACTIONS (10)
  - Skin disorder [Unknown]
  - Joint stiffness [Not Recovered/Not Resolved]
  - Arthritis [Not Recovered/Not Resolved]
  - Inflammation [Not Recovered/Not Resolved]
  - Drug ineffective [Unknown]
  - Pain in extremity [Not Recovered/Not Resolved]
  - Arthralgia [Not Recovered/Not Resolved]
  - Blood cholesterol increased [Recovering/Resolving]
  - Onychomycosis [Not Recovered/Not Resolved]
  - Device issue [Unknown]

NARRATIVE: CASE EVENT DATE: 20200101
